FAERS Safety Report 19903470 (Version 1)
Quarter: 2021Q4

REPORT INFORMATION
  Report Type: Spontaneous
  Country: JP (occurrence: JP)
  Receive Date: 20211001
  Receipt Date: 20211001
  Transmission Date: 20220303
  Serious: Yes (Other)
  Sender: FDA-Public Use
  Company Number: JP-ABBVIE-21K-087-4102368-00

PATIENT
  Sex: Female

DRUGS (1)
  1. RINVOQ [Suspect]
     Active Substance: UPADACITINIB
     Indication: Rheumatoid arthritis
     Route: 048
     Dates: start: 20210820

REACTIONS (4)
  - Seizure [Recovered/Resolved]
  - Skin disorder [Unknown]
  - Arthralgia [Recovering/Resolving]
  - Urinary tract discomfort [Unknown]

NARRATIVE: CASE EVENT DATE: 20210820
